FAERS Safety Report 14347158 (Version 1)
Quarter: 2018Q1

REPORT INFORMATION
  Report Type: Spontaneous
  Country: IT (occurrence: IT)
  Receive Date: 20180103
  Receipt Date: 20180103
  Transmission Date: 20180509
  Serious: Yes (Other)
  Sender: FDA-Public Use
  Company Number: IT-PFIZER INC-2017551944

PATIENT
  Age: 35 Year
  Sex: Female

DRUGS (3)
  1. HYDROXYCHLOROQUINE SULFATE. [Concomitant]
     Active Substance: HYDROXYCHLOROQUINE SULFATE
     Indication: RHEUMATOID ARTHRITIS
     Dosage: 400 MG, UNK
     Route: 048
     Dates: start: 20100101, end: 20171211
  2. FOLINA [Concomitant]
     Active Substance: FOLIC ACID
     Indication: THALASSAEMIA BETA
     Dosage: 5 MG, UNK
     Route: 048
     Dates: start: 20050101, end: 20171211
  3. METHOTREXATE. [Suspect]
     Active Substance: METHOTREXATE
     Indication: RHEUMATOID ARTHRITIS
     Dosage: 7.5 MG, WEEKLY
     Route: 030
     Dates: start: 20141027, end: 20150205

REACTIONS (3)
  - Abdominal pain [Recovering/Resolving]
  - Abdominal tenderness [Recovering/Resolving]
  - Haematemesis [Recovering/Resolving]

NARRATIVE: CASE EVENT DATE: 20150205
